FAERS Safety Report 13900009 (Version 1)
Quarter: 2017Q3

REPORT INFORMATION
  Report Type: Spontaneous
  Country: CN (occurrence: CN)
  Receive Date: 20170823
  Receipt Date: 20170823
  Transmission Date: 20171127
  Serious: Yes (Hospitalization, Other)
  Sender: FDA-Public Use
  Company Number: CN-ABBVIE-17P-035-2081012-00

PATIENT
  Age: 30 Year
  Sex: Female

DRUGS (4)
  1. DEPAKINE CHRONO [Suspect]
     Active Substance: VALPROATE SODIUM
     Indication: HALLUCINATION, AUDITORY
     Dosage: TABLET, EXTENDED RELEASE, DOSE GRADUALLY DECREASED.
     Route: 048
     Dates: start: 20170607, end: 20170610
  2. RISPERDAL [Suspect]
     Active Substance: RISPERIDONE
     Indication: BIPOLAR DISORDER
     Route: 048
     Dates: start: 20170215, end: 20170606
  3. DEPAKINE CHRONO [Suspect]
     Active Substance: VALPROATE SODIUM
     Indication: BIPOLAR DISORDER
     Dosage: TABLET, EXTENDED RELEASE
     Route: 048
     Dates: start: 20151010, end: 20170606
  4. RISPERDAL [Suspect]
     Active Substance: RISPERIDONE
     Indication: HALLUCINATION, AUDITORY
     Route: 048
     Dates: start: 20170607, end: 20170608

REACTIONS (6)
  - Blood prolactin increased [Recovering/Resolving]
  - Weight increased [Recovering/Resolving]
  - Tremor [Recovering/Resolving]
  - Menstrual disorder [Recovering/Resolving]
  - Alopecia [Recovering/Resolving]
  - Asthenia [Recovering/Resolving]

NARRATIVE: CASE EVENT DATE: 20170608
